FAERS Safety Report 8769604 (Version 6)
Quarter: 2013Q2

REPORT INFORMATION
  Report Type: Spontaneous
  Country: US (occurrence: US)
  Receive Date: 20120905
  Receipt Date: 20130418
  Transmission Date: 20140414
  Serious: Yes (Hospitalization, Disabling, Other)
  Sender: FDA-Public Use
  Company Number: US-009507513-1208USA012043

PATIENT
  Sex: Female
  Weight: 51.7 kg

DRUGS (8)
  1. FOSAMAX [Suspect]
     Indication: OSTEOPOROSIS
     Dosage: 70 MG, QW
     Route: 048
     Dates: start: 20011118
  2. FOSAMAX [Suspect]
     Dosage: 70 UNK, UNK
     Route: 048
     Dates: start: 20020603, end: 20080131
  3. FOSAMAX [Suspect]
     Indication: OSTEOPOROSIS
     Dosage: UNK
     Route: 048
     Dates: start: 20080301, end: 201012
  4. ALENDRONATE SODIUM [Suspect]
     Indication: OSTEOPOROSIS
     Dosage: 70 MG, UNK
     Dates: start: 20080301, end: 20101209
  5. SYNTHROID [Concomitant]
     Indication: HYPERTHYROIDISM
     Dosage: UNK
     Dates: start: 200105, end: 200804
  6. NITROGLYCERIN [Concomitant]
     Indication: CARDIAC DISORDER
     Dosage: UNK
     Dates: start: 200010, end: 201109
  7. TRIAMTERENE [Concomitant]
     Indication: FLUID RETENTION
     Dosage: UNK
     Dates: start: 200103, end: 201112
  8. RANITIDINE [Concomitant]
     Indication: GASTROOESOPHAGEAL REFLUX DISEASE
     Dosage: UNK
     Dates: start: 200108, end: 200707

REACTIONS (57)
  - Femur fracture [Not Recovered/Not Resolved]
  - Intramedullary rod insertion [Not Recovered/Not Resolved]
  - Endoscopy [Unknown]
  - Low turnover osteopathy [Not Recovered/Not Resolved]
  - Osteoporosis [Not Recovered/Not Resolved]
  - Meniscus removal [Unknown]
  - Tibia fracture [Unknown]
  - Cholecystectomy [Unknown]
  - Arthroscopy [Unknown]
  - Chest pain [Unknown]
  - Myocardial infarction [Unknown]
  - Uterine dilation and curettage [Unknown]
  - Meniscus injury [Unknown]
  - Cataract operation [Unknown]
  - Intraocular lens implant [Unknown]
  - Ankle fracture [Unknown]
  - Impaired healing [Unknown]
  - Adverse event [Unknown]
  - Spinal deformity [Unknown]
  - Gastrointestinal disorder [Unknown]
  - Adverse event [Unknown]
  - Uterine polyp [Unknown]
  - Arthritis [Unknown]
  - Anxiety [Unknown]
  - Haemorrhoids [Unknown]
  - Fungal infection [Unknown]
  - Hypertonic bladder [Unknown]
  - Rheumatoid arthritis [Unknown]
  - Skin disorder [Unknown]
  - Hiatus hernia [Unknown]
  - Cataract [Unknown]
  - Aortic arteriosclerosis [Unknown]
  - Anaemia postoperative [Unknown]
  - Osteopenia [Unknown]
  - Scoliosis [Unknown]
  - Bronchitis viral [Unknown]
  - Coronary artery disease [Unknown]
  - Urinary incontinence [Unknown]
  - Urinary tract infection [Unknown]
  - Lung disorder [Unknown]
  - Osteoarthritis [Unknown]
  - Pulmonary fibrosis [Unknown]
  - Infection [Unknown]
  - Infection [Unknown]
  - Device failure [Unknown]
  - Impaired healing [Unknown]
  - Spinal osteoarthritis [Unknown]
  - Osteoarthritis [Unknown]
  - Vascular calcification [Unknown]
  - Bone cyst [Unknown]
  - Osteoarthritis [Unknown]
  - Arthropathy [Unknown]
  - Psoriatic arthropathy [Unknown]
  - Protein urine present [Unknown]
  - Arthralgia [Not Recovered/Not Resolved]
  - Gastritis [Unknown]
  - Odynophagia [Unknown]
